FAERS Safety Report 10843211 (Version 1)
Quarter: 2015Q1

REPORT INFORMATION
  Report Type: Report from Study
  Country: US (occurrence: US)
  Receive Date: 20150220
  Receipt Date: 20150220
  Transmission Date: 20150721
  Serious: No
  Sender: FDA-Public Use
  Company Number: US-ABBVIE-14P-163-1282290-00

PATIENT
  Age: 34 Year
  Sex: Female

DRUGS (1)
  1. HUMIRA [Suspect]
     Active Substance: ADALIMUMAB
     Indication: PRODUCT USED FOR UNKNOWN INDICATION
     Route: 058
     Dates: start: 20130812

REACTIONS (6)
  - Irritability [Unknown]
  - Blood pressure increased [Unknown]
  - Anxiety [Unknown]
  - Loss of consciousness [Unknown]
  - Palpitations [Unknown]
  - Mood altered [Unknown]

NARRATIVE: CASE EVENT DATE: 20140820
